FAERS Safety Report 8050018 (Version 7)
Quarter: 2014Q1

REPORT INFORMATION
  Report Type: Spontaneous
  Country: US (occurrence: US)
  Receive Date: 20110722
  Receipt Date: 20140327
  Transmission Date: 20141002
  Serious: Yes (Congenital Anomaly, Other)
  Sender: FDA-Public Use
  Company Number: US-PFIZER INC-2011159746

PATIENT
  Sex: Female
  Weight: 1.8 kg

DRUGS (14)
  1. ZOLOFT [Suspect]
     Indication: ANXIETY
     Dosage: 25 MG, 1X/DAY
     Route: 064
     Dates: start: 20040811
  2. ZOLOFT [Suspect]
     Indication: DEPRESSION
     Dosage: 50 MG, UNK
     Route: 064
     Dates: start: 20040827
  3. ZOLOFT [Suspect]
     Indication: AFFECTIVE DISORDER
     Dosage: UNK
     Route: 064
     Dates: start: 20050309
  4. METRONIDAZOLE [Concomitant]
     Dosage: 25 MG, UNK
     Route: 064
     Dates: start: 200411
  5. DOCUSATE SODIUM [Concomitant]
     Dosage: UNK
     Route: 064
  6. FERROUS SULFATE [Concomitant]
     Dosage: UNK
     Route: 064
  7. HYDROCODONE W/ACETAMINOPHEN [Concomitant]
     Dosage: UNK
     Route: 064
  8. MICONAZOLE [Concomitant]
     Dosage: 2 %, UNK
     Route: 064
  9. LEVAQUIN [Concomitant]
     Dosage: UNK
     Route: 064
  10. METROGEL [Concomitant]
     Dosage: 0.75 %, UNK
     Route: 064
  11. PROMETHAZINE [Concomitant]
     Dosage: UNK
     Route: 064
  12. METOCLOPRAMIDE [Concomitant]
     Dosage: UNK
     Route: 064
  13. CEPHALEXIN [Concomitant]
     Dosage: UNK
     Route: 064
  14. PRENATAL VITAMINS [Concomitant]
     Dosage: UNK
     Route: 064

REACTIONS (7)
  - Maternal exposure timing unspecified [Unknown]
  - Talipes [Unknown]
  - Knee deformity [Unknown]
  - Tendinous contracture [Unknown]
  - Knee deformity [Unknown]
  - Tibial torsion [Unknown]
  - Congenital anomaly [Unknown]
